FAERS Safety Report 14814433 (Version 1)
Quarter: 2018Q2

REPORT INFORMATION
  Report Type: Spontaneous
  Country: US (occurrence: US)
  Receive Date: 20180417
  Receipt Date: 20180417
  Transmission Date: 20180711
  Serious: Yes (Death, Life-Threatening)
  Sender: FDA-Public Use
  Company Number: None

PATIENT
  Sex: Male
  Weight: 81 kg

DRUGS (2)
  1. EXPAREL [Suspect]
     Active Substance: BUPIVACAINE
     Indication: POSTOPERATIVE ANALGESIA
     Dosage: INTERSCALENE NERVE BLOCK?
  2. EXPAREL [Concomitant]
     Active Substance: BUPIVACAINE
     Dates: start: 20170825, end: 20170825

REACTIONS (3)
  - Dyspnoea [None]
  - Respiratory failure [None]
  - Paralysis [None]

NARRATIVE: CASE EVENT DATE: 20170828
